FAERS Safety Report 5205111-9 (Version None)
Quarter: 2007Q1

REPORT INFORMATION
  Report Type: 
  Country: None (occurrence: None)
  Receive Date: 20070109
  Receipt Date: 20070109
  Transmission Date: 20070707
  Serious: Yes (Hospitalization)
  Sender: FDA-Public Use
  Company Number: None

PATIENT
  Age: 69 Year
  Sex: Female
  Weight: 49 kg

DRUGS (2)
  1. TARCEVA [Suspect]
     Indication: PANCREATIC CARCINOMA
     Dosage: N/A N/A OTHER
  2. GEMCITABINE [Suspect]

REACTIONS (4)
  - INCISION SITE ERYTHEMA [None]
  - PYREXIA [None]
  - WOUND DEHISCENCE [None]
  - WOUND DRAINAGE [None]
